FAERS Safety Report 6130545-8 (Version None)
Quarter: 2009Q1

REPORT INFORMATION
  Report Type: 
  Country: None (occurrence: None)
  Receive Date: 20090323
  Receipt Date: 20090313
  Transmission Date: 20090719
  Serious: Yes (Other)
  Sender: FDA-Public Use
  Company Number: PAR_02888_2009

PATIENT
  Sex: Female

DRUGS (10)
  1. DOXYCYCLINE [Suspect]
     Indication: DRUG USE FOR UNKNOWN INDICATION
     Dosage: DF
     Dates: start: 20090217, end: 20090201
  2. PEGASYS [Suspect]
     Indication: HEPATITIS C
     Dosage: 180 ?G 1X/ WEEK SUBCUTANEOUS
     Route: 058
     Dates: start: 20081006
  3. RIBAVIRIN [Suspect]
     Indication: HEPATITIS C
     Dosage: 1000 MG,
     Dates: start: 20081006
  4. METOPROLOL [Concomitant]
  5. LEVOTHYROXINE [Concomitant]
  6. AKARIN [Concomitant]
  7. KLONOPIN [Concomitant]
  8. APPETITE STIMULANTS [Concomitant]
  9. VALTREX [Concomitant]
  10. UNSPECIFIED MEDICATION FOR ITCHING [Concomitant]

REACTIONS (2)
  - RASH GENERALISED [None]
  - WHITE BLOOD CELL COUNT DECREASED [None]
